FAERS Safety Report 18761644 (Version 1)
Quarter: 2021Q1

REPORT INFORMATION
  Report Type: Spontaneous
  Country: CN (occurrence: CN)
  Receive Date: 20210120
  Receipt Date: 20210120
  Transmission Date: 20210419
  Serious: Yes (Other)
  Sender: FDA-Public Use
  Company Number: CN-ASTRAZENECA-2021A004114

PATIENT
  Age: 45 Year
  Sex: Male

DRUGS (3)
  1. OSIMERTINIB. [Suspect]
     Active Substance: OSIMERTINIB
     Indication: LUNG ADENOCARCINOMA
     Route: 048
  2. NIVOLUMAB [Concomitant]
     Active Substance: NIVOLUMAB
     Route: 065
  3. DOCETAXEL. [Concomitant]
     Active Substance: DOCETAXEL
     Route: 065

REACTIONS (4)
  - Malignant neoplasm progression [Unknown]
  - Off label use [Unknown]
  - Drug resistance [Unknown]
  - Acquired gene mutation [Unknown]
